FAERS Safety Report 11096973 (Version 4)
Quarter: 2015Q4

REPORT INFORMATION
  Report Type: Report from Study
  Country: US (occurrence: US)
  Receive Date: 20150507
  Receipt Date: 20151009
  Transmission Date: 20160304
  Serious: Yes (Other)
  Sender: FDA-Public Use
  Company Number: US-SA-2014SA141045

PATIENT
  Age: 53 Year
  Sex: Male

DRUGS (3)
  1. SOLU-MEDROL [Concomitant]
     Active Substance: METHYLPREDNISOLONE SODIUM SUCCINATE
  2. AUBAGIO [Suspect]
     Active Substance: TERIFLUNOMIDE
     Indication: MULTIPLE SCLEROSIS
     Route: 048
  3. AUBAGIO [Suspect]
     Active Substance: TERIFLUNOMIDE
     Indication: MULTIPLE SCLEROSIS
     Route: 048
     Dates: start: 20141001

REACTIONS (13)
  - Drug ineffective [Unknown]
  - Sinus disorder [Unknown]
  - Dysgraphia [Unknown]
  - Abasia [Not Recovered/Not Resolved]
  - Asthenia [Unknown]
  - Drug dose omission [Unknown]
  - Condition aggravated [Not Recovered/Not Resolved]
  - Pulmonary congestion [Unknown]
  - Ear disorder [Unknown]
  - Speech disorder [Unknown]
  - Hepatic enzyme increased [Recovered/Resolved]
  - Nasopharyngitis [Unknown]
  - Memory impairment [Unknown]

NARRATIVE: CASE EVENT DATE: 201412
